FAERS Safety Report 22134838 (Version 2)
Quarter: 2023Q2

REPORT INFORMATION
  Report Type: Spontaneous
  Country: US (occurrence: US)
  Receive Date: 20230324
  Receipt Date: 20230606
  Transmission Date: 20230722
  Serious: Yes (Other)
  Sender: FDA-Public Use
  Company Number: US-BAYER-2023A034089

PATIENT
  Age: 20 Year
  Sex: Female

DRUGS (2)
  1. ASPIRIN [Suspect]
     Active Substance: ASPIRIN
     Dosage: 40 DF, ONCE
     Dates: start: 20220712, end: 20220713
  2. DIPHENHYDRAMINE [Suspect]
     Active Substance: DIPHENHYDRAMINE
     Dosage: 10 DF, ONCE

REACTIONS (5)
  - Suicide attempt [None]
  - Intentional overdose [None]
  - Renal tubular dysfunction [Recovered/Resolved]
  - Fanconi syndrome [None]
  - Toxicity to various agents [None]

NARRATIVE: CASE EVENT DATE: 20220713
